FAERS Safety Report 23718348 (Version 1)
Quarter: 2024Q2

REPORT INFORMATION
  Report Type: Spontaneous
  Country: US (occurrence: None)
  Receive Date: 20240406
  Receipt Date: 20240406
  Transmission Date: 20240715
  Serious: Yes (Other)
  Sender: FDA-Public Use
  Company Number: None

PATIENT
  Age: 47 Year
  Sex: Female
  Weight: 43.2 kg

DRUGS (1)
  1. JUBLIA [Suspect]
     Active Substance: EFINACONAZOLE
     Indication: Onychomycosis
     Dosage: DAILY TOPICAL ?
     Route: 061
     Dates: start: 20240330, end: 20240403

REACTIONS (9)
  - Burning sensation [None]
  - Paraesthesia [None]
  - Erythema [None]
  - Vision blurred [None]
  - Dizziness [None]
  - Tachycardia [None]
  - Palpitations [None]
  - Nausea [None]
  - Blood pressure decreased [None]

NARRATIVE: CASE EVENT DATE: 20240403
